FAERS Safety Report 8432255-0 (Version None)
Quarter: 2012Q2

REPORT INFORMATION
  Report Type: 
  Country: None (occurrence: None)
  Receive Date: 20120613
  Receipt Date: 20120607
  Transmission Date: 20120825
  Serious: Yes (Hospitalization)
  Sender: FDA-Public Use
  Company Number: PHHY2012MX049232

PATIENT
  Sex: Female

DRUGS (1)
  1. STALEVO 100 [Suspect]
     Indication: PARKINSON'S DISEASE
     Dosage: 4 DF, DAILY
     Route: 048
     Dates: start: 20060601

REACTIONS (2)
  - NON-HODGKIN'S LYMPHOMA [None]
  - INTESTINAL OBSTRUCTION [None]
